FAERS Safety Report 4750078-0 (Version None)
Quarter: 2005Q3

REPORT INFORMATION
  Report Type: 
  Country: None (occurrence: None)
  Receive Date: 20050822
  Receipt Date: 20050810
  Transmission Date: 20060218
  Serious: Yes (Other)
  Sender: FDA-Public Use
  Company Number: 2005113430

PATIENT
  Sex: Female

DRUGS (2)
  1. AROMASIN [Suspect]
     Indication: ILL-DEFINED DISORDER
  2. ANTIHYPERTENSIVES (ANTIHYPETENSIVES) [Concomitant]

REACTIONS (1)
  - ANGIONEUROTIC OEDEMA [None]
